FAERS Safety Report 15485732 (Version 11)
Quarter: 2020Q3

REPORT INFORMATION
  Report Type: Spontaneous
  Country: JP (occurrence: JP)
  Receive Date: 20181010
  Receipt Date: 20200715
  Transmission Date: 20201102
  Serious: Yes (Life-Threatening, Hospitalization, Other)
  Sender: FDA-Public Use
  Company Number: JP-AMGEN-JPNSP2018133475

PATIENT
  Age: 49 Year
  Sex: Male

DRUGS (10)
  1. VEPESID [Concomitant]
     Active Substance: ETOPOSIDE
     Dosage: 140 MG, QD
     Route: 041
     Dates: start: 20180828, end: 20180830
  2. G?LASTA [Suspect]
     Active Substance: PEGFILGRASTIM
     Indication: COLONY STIMULATING FACTOR THERAPY
     Dosage: 3.6 MILLIGRAM, QD
     Route: 058
     Dates: start: 20180903, end: 20180903
  3. CALONAL [Concomitant]
     Active Substance: ACETAMINOPHEN
     Indication: PAIN
     Dosage: 500 MILLIGRAM
     Route: 048
     Dates: start: 20180907, end: 20180911
  4. LOXOPROFEN [Concomitant]
     Active Substance: LOXOPROFEN
     Indication: PYREXIA
     Dosage: 60 MILLIGRAM
     Route: 048
  5. GRAN [Suspect]
     Active Substance: FILGRASTIM
     Indication: PRODUCT USED FOR UNKNOWN INDICATION
     Dosage: UNK
     Route: 065
  6. CISPLATIN. [Concomitant]
     Active Substance: CISPLATIN
     Indication: SMALL CELL LUNG CANCER
     Dosage: 119 MILLIGRAM
     Route: 041
     Dates: start: 20180802
  7. VEPESID [Concomitant]
     Active Substance: ETOPOSIDE
     Indication: SMALL CELL LUNG CANCER
     Dosage: 140 MG, QD
     Route: 041
     Dates: start: 20180802, end: 20180804
  8. ASTOMIN [DIMEMORFAN PHOSPHATE] [Concomitant]
     Indication: PRODUCT USED FOR UNKNOWN INDICATION
     Dosage: 10 MILLIGRAM
     Route: 048
     Dates: start: 20180721
  9. CISPLATIN. [Concomitant]
     Active Substance: CISPLATIN
     Dosage: 119 MILLIGRAM
     Route: 041
     Dates: start: 20180828
  10. NEXIUM [Concomitant]
     Active Substance: ESOMEPRAZOLE MAGNESIUM
     Indication: PRODUCT USED FOR UNKNOWN INDICATION
     Dosage: 20 MILLIGRAM
     Route: 048
     Dates: start: 20180810

REACTIONS (1)
  - Aortitis [Recovering/Resolving]

NARRATIVE: CASE EVENT DATE: 20180912
